FAERS Safety Report 6584649-6 (Version None)
Quarter: 2010Q1

REPORT INFORMATION
  Report Type: 
  Country: None (occurrence: None)
  Receive Date: 20100217
  Receipt Date: 20100205
  Transmission Date: 20100710
  Serious: Yes (Hospitalization)
  Sender: FDA-Public Use
  Company Number: CO-ELI_LILLY_AND_COMPANY-CO201001000555

PATIENT
  Age: 57 Year
  Sex: Male

DRUGS (5)
  1. FORTEO [Suspect]
     Indication: OSTEOPOROSIS
     Dosage: 20 UG, DAILY (1/D)
     Route: 058
     Dates: start: 20091023
  2. CALCITRIOL [Concomitant]
     Indication: SUPPLEMENTATION THERAPY
  3. LOVASTATIN [Concomitant]
     Indication: DYSLIPIDAEMIA
  4. LEVOTHYROXINE SODIUM [Concomitant]
     Indication: HYPERTHYROIDISM
  5. OMEPRAZOLE [Concomitant]

REACTIONS (2)
  - ACUTE MYOCARDIAL INFARCTION [None]
  - CHEST PAIN [None]
